FAERS Safety Report 25986543 (Version 2)
Quarter: 2025Q4

REPORT INFORMATION
  Report Type: Spontaneous
  Country: EU (occurrence: EU)
  Receive Date: 20251031
  Receipt Date: 20251112
  Transmission Date: 20260118
  Serious: Yes (Disabling)
  Sender: BRISTOL-MYERS SQUIBB COMPANY
  Company Number: EU-BRISTOL-MYERS SQUIBB COMPANY-2025-148050

PATIENT
  Sex: Male

DRUGS (2)
  1. ELIQUIS [Suspect]
     Active Substance: APIXABAN
     Indication: Thrombosis
     Dosage: 4 DAY FOR ONE WEEK THEN 2 DAY FOR 3 MONTHS PROLONGED 1 MONTH FOLLOWING
     Dates: start: 20250717
  2. ELIQUIS [Suspect]
     Active Substance: APIXABAN
     Dosage: 4 DAY FOR ONE WEEK THEN 2 DAY FOR 3 MONTHS PROLONGED 1 MONTH FOLLOWING
     Dates: start: 202507

REACTIONS (3)
  - Pain in extremity [Unknown]
  - Joint swelling [Unknown]
  - Weight increased [Unknown]
